FAERS Safety Report 9541821 (Version 1)
Quarter: 2013Q3

REPORT INFORMATION
  Report Type: Report from Study
  Country: BR (occurrence: BR)
  Receive Date: 20130923
  Receipt Date: 20130923
  Transmission Date: 20140515
  Serious: Yes (Life-Threatening, Hospitalization, Other)
  Sender: FDA-Public Use
  Company Number: PHHY2013BR105137

PATIENT
  Sex: Female

DRUGS (1)
  1. FORASEQ [Suspect]
     Indication: CARDIAC ASTHMA
     Dosage: 1 DF, (1 CAPSULE OF EACH TREATMENT) EVERY 12 HOURS.

REACTIONS (3)
  - Malignant peritoneal neoplasm [Not Recovered/Not Resolved]
  - Gastric cancer [Not Recovered/Not Resolved]
  - Ascites [Not Recovered/Not Resolved]
